FAERS Safety Report 11495337 (Version 1)
Quarter: 2015Q3

REPORT INFORMATION
  Report Type: Spontaneous
  Country: US (occurrence: None)
  Receive Date: 20150910
  Receipt Date: 20150910
  Transmission Date: 20151125
  Serious: No
  Sender: FDA-Public Use
  Company Number: None

PATIENT
  Age: 34 Year
  Sex: Female
  Weight: 50.35 kg

DRUGS (11)
  1. VITAMIN D [Concomitant]
     Active Substance: CHOLECALCIFEROL
  2. MYBETRIQ [Concomitant]
  3. ELMIRON [Concomitant]
     Active Substance: PENTOSAN POLYSULFATE SODIUM
  4. NASACORT [Concomitant]
     Active Substance: TRIAMCINOLONE ACETONIDE
  5. LINZESS [Concomitant]
     Active Substance: LINACLOTIDE
  6. PROBIOTICS [Concomitant]
     Active Substance: PROBIOTICS NOS
  7. CALCIUM [Concomitant]
     Active Substance: CALCIUM
  8. MAGNESIUM CITRATE. [Concomitant]
     Active Substance: MAGNESIUM CITRATE
  9. LEVAQUIN [Suspect]
     Active Substance: LEVOFLOXACIN
     Indication: SINUSITIS
     Dosage: 14 PILLS ONCE DAILY TAKEN BY MOUTH
     Route: 048
  10. PREDNISONE. [Concomitant]
     Active Substance: PREDNISONE
  11. CQ-10 [Concomitant]

REACTIONS (8)
  - Musculoskeletal stiffness [None]
  - Abasia [None]
  - Swelling [None]
  - Muscular weakness [None]
  - Confusional state [None]
  - Hallucination [None]
  - Mental impairment [None]
  - Temporomandibular joint syndrome [None]

NARRATIVE: CASE EVENT DATE: 20150827
